FAERS Safety Report 5608909-8 (Version None)
Quarter: 2008Q1

REPORT INFORMATION
  Report Type: 
  Country: None (occurrence: None)
  Receive Date: 20080129
  Receipt Date: 20080129
  Transmission Date: 20080703
  Serious: Yes (Hospitalization)
  Sender: FDA-Public Use
  Company Number: None

PATIENT
  Age: 37 Year
  Sex: Female
  Weight: 81 kg

DRUGS (2)
  1. NEVIRAPINE [Suspect]
     Indication: HIV INFECTION
     Dosage: 200 MG BD ORAL
     Route: 048
     Dates: start: 20070925
  2. TENOFOVIR/EMTRICITABINE [Suspect]
     Indication: HIV INFECTION
     Dosage: 500 MG OD ORAL
     Route: 048
     Dates: start: 20070925

REACTIONS (6)
  - CHEST X-RAY ABNORMAL [None]
  - GASTROOESOPHAGEAL REFLUX DISEASE [None]
  - HIATUS HERNIA [None]
  - IMPAIRED GASTRIC EMPTYING [None]
  - MALARIA [None]
  - RETROPERITONEAL NEOPLASM [None]
